FAERS Safety Report 5447828-7 (Version None)
Quarter: 2007Q3

REPORT INFORMATION
  Report Type: 
  Country: None (occurrence: None)
  Receive Date: 20070910
  Receipt Date: 20070829
  Transmission Date: 20080115
  Serious: Yes (Hospitalization)
  Sender: FDA-Public Use
  Company Number: US-ELI_LILLY_AND_COMPANY-US200708006637

PATIENT
  Age: 8 Year
  Sex: Male
  Weight: 45.351 kg

DRUGS (2)
  1. STRATTERA [Suspect]
     Indication: ATTENTION DEFICIT/HYPERACTIVITY DISORDER
     Dosage: 10 MG, UNK
     Dates: start: 20050401, end: 20050401
  2. STRATTERA [Suspect]
     Dosage: 18 MG, UNK
     Dates: start: 20050401, end: 20050401

REACTIONS (9)
  - ANXIETY [None]
  - CONDUCT DISORDER [None]
  - DEPRESSION [None]
  - FEAR [None]
  - INSOMNIA [None]
  - IRRITABILITY [None]
  - PANIC ATTACK [None]
  - SCHOOL REFUSAL [None]
  - SUICIDAL IDEATION [None]
